FAERS Safety Report 15110644 (Version 1)
Quarter: 2018Q3

REPORT INFORMATION
  Report Type: Spontaneous
  Country: US (occurrence: US)
  Receive Date: 20180705
  Receipt Date: 20180705
  Transmission Date: 20181010
  Serious: No
  Sender: FDA-Public Use
  Company Number: US-PFIZER INC-2018266315

PATIENT
  Age: 52 Year
  Sex: Female

DRUGS (4)
  1. MINOXIDIL. [Suspect]
     Active Substance: MINOXIDIL
     Indication: VITILIGO
  2. MINOXIDIL. [Suspect]
     Active Substance: MINOXIDIL
     Indication: PSORIATIC ARTHROPATHY
  3. MINOXIDIL. [Suspect]
     Active Substance: MINOXIDIL
     Indication: ALOPECIA AREATA
     Dosage: UNK
  4. MINOXIDIL. [Suspect]
     Active Substance: MINOXIDIL
     Indication: PSORIASIS

REACTIONS (1)
  - Drug ineffective for unapproved indication [Unknown]
